FAERS Safety Report 15481394 (Version 1)
Quarter: 2018Q4

REPORT INFORMATION
  Report Type: Spontaneous
  Country: US (occurrence: US)
  Receive Date: 20181010
  Receipt Date: 20181010
  Transmission Date: 20190205
  Serious: No
  Sender: FDA-Public Use
  Company Number: US-JNJFOC-20180920047

PATIENT

DRUGS (2)
  1. NARCAN [Concomitant]
     Active Substance: NALOXONE HYDROCHLORIDE
     Route: 065
  2. FENTANYL. [Suspect]
     Active Substance: FENTANYL
     Indication: PRODUCT USED FOR UNKNOWN INDICATION
     Route: 065

REACTIONS (6)
  - Disorientation [Unknown]
  - Fatigue [Unknown]
  - Hypoaesthesia [Unknown]
  - Dizziness [Unknown]
  - Hypersomnia [Unknown]
  - Confusional state [Unknown]
